FAERS Safety Report 13141843 (Version 1)
Quarter: 2017Q1

REPORT INFORMATION
  Report Type: Spontaneous
  Country: US (occurrence: US)
  Receive Date: 20170123
  Receipt Date: 20170123
  Transmission Date: 20170428
  Serious: Yes (Other)
  Sender: FDA-Public Use
  Company Number: US-ELI_LILLY_AND_COMPANY-US201701006575

PATIENT
  Sex: Male

DRUGS (1)
  1. HUMALOG [Suspect]
     Active Substance: INSULIN LISPRO
     Indication: DIABETES MELLITUS
     Dosage: 15 U, PRN
     Route: 065

REACTIONS (3)
  - Blindness [Not Recovered/Not Resolved]
  - Blood glucose abnormal [Unknown]
  - Glaucoma [Unknown]

NARRATIVE: CASE EVENT DATE: 2014
